FAERS Safety Report 6803868-4 (Version None)
Quarter: 2010Q2

REPORT INFORMATION
  Report Type: 
  Country: None (occurrence: None)
  Receive Date: 20100628
  Receipt Date: 20100603
  Transmission Date: 20101027
  Serious: No
  Sender: FDA-Public Use
  Company Number: US-ABBOTT-10P-163-0649610-00

PATIENT
  Sex: Female
  Weight: 66.4 kg

DRUGS (6)
  1. LUPRON DEPOT [Suspect]
     Indication: UTERINE LEIOMYOMA
     Route: 030
     Dates: start: 20100603
  2. LUPRON DEPOT [Suspect]
     Dates: start: 20100507, end: 20100507
  3. LUPRON DEPOT-PED [Suspect]
     Indication: UTERINE LEIOMYOMA
     Route: 030
     Dates: start: 20100603, end: 20100603
  4. LUPRON DEPOT-PED [Suspect]
     Indication: VAGINAL HAEMORRHAGE
     Route: 030
     Dates: start: 20100603
  5. IRON [Concomitant]
     Indication: ANAEMIA
  6. FOLIC ACID [Concomitant]
     Indication: VITAMIN SUPPLEMENTATION

REACTIONS (3)
  - DRUG DISPENSING ERROR [None]
  - DRUG PRESCRIBING ERROR [None]
  - INCORRECT DOSE ADMINISTERED [None]
